FAERS Safety Report 22594781 (Version 1)
Quarter: 2023Q2

REPORT INFORMATION
  Report Type: Spontaneous
  Country: TW (occurrence: TW)
  Receive Date: 20230613
  Receipt Date: 20230613
  Transmission Date: 20230722
  Serious: Yes (Life-Threatening, Hospitalization, Disabling, Other)
  Sender: FDA-Public Use
  Company Number: TW-PFIZER INC-PV202300101879

PATIENT
  Sex: Male

DRUGS (1)
  1. XELJANZ [Suspect]
     Active Substance: TOFACITINIB CITRATE
     Indication: Psoriatic arthropathy
     Dosage: 5 MG, 1X/DAY
     Route: 048
     Dates: start: 20210406, end: 20230316

REACTIONS (4)
  - Vasodilation procedure [Recovered/Resolved]
  - Respiratory failure [Recovered/Resolved]
  - Impaired healing [Recovered/Resolved with Sequelae]
  - Decubitus ulcer [Not Recovered/Not Resolved]
